FAERS Safety Report 18707891 (Version 1)
Quarter: 2021Q1

REPORT INFORMATION
  Report Type: Spontaneous
  Country: US (occurrence: US)
  Receive Date: 20210106
  Receipt Date: 20210106
  Transmission Date: 20210419
  Serious: No
  Sender: FDA-Public Use
  Company Number: US-PERRIGO-20US002270

PATIENT
  Sex: Female

DRUGS (1)
  1. HYDROCORTISONE. [Suspect]
     Active Substance: HYDROCORTISONE
     Indication: PRODUCT USED FOR UNKNOWN INDICATION
     Dosage: UNKNOWN, SINGLE
     Route: 061
     Dates: start: 202002, end: 202002

REACTIONS (2)
  - Lid sulcus deepened [Not Recovered/Not Resolved]
  - Dark circles under eyes [Not Recovered/Not Resolved]

NARRATIVE: CASE EVENT DATE: 202002
